FAERS Safety Report 14772411 (Version 3)
Quarter: 2018Q2

REPORT INFORMATION
  Report Type: Report from Study
  Country: None (occurrence: US)
  Receive Date: 20180418
  Receipt Date: 20180510
  Transmission Date: 20180711
  Serious: Yes (Other)
  Sender: FDA-Public Use
  Company Number: US-ABBVIE-18K-163-2321978-00

PATIENT
  Age: 66 Year
  Sex: Female
  Weight: 68.1 kg

DRUGS (3)
  1. ALENDRONIC ACID [Concomitant]
     Active Substance: ALENDRONIC ACID
     Indication: OSTEOPOROSIS
  2. ARMOUR THYROID [Concomitant]
     Active Substance: THYROID, PORCINE
     Indication: HYPOTHYROIDISM
  3. HUMIRA [Suspect]
     Active Substance: ADALIMUMAB
     Indication: ANKYLOSING SPONDYLITIS
     Route: 058
     Dates: start: 2012, end: 20180314

REACTIONS (3)
  - Hyperkeratosis [Not Recovered/Not Resolved]
  - Injection site bruising [Unknown]
  - Impaired healing [Unknown]

NARRATIVE: CASE EVENT DATE: 201803
